FAERS Safety Report 8791236 (Version 1)
Quarter: 2012Q4

REPORT INFORMATION
  Report Type: Spontaneous
  Country: US (occurrence: None)
  Receive Date: 20120914
  Receipt Date: 20120914
  Transmission Date: 20130627
  Serious: Yes (Hospitalization)
  Sender: FDA-Public Use
  Company Number: None

PATIENT
  Age: 50 Year
  Sex: Male
  Weight: 63.5 kg

DRUGS (5)
  1. OMNIPAQUE [Suspect]
     Dosage: 125ML  ONCE  IV  RECENT
     Route: 042
  2. INSULIN [Concomitant]
  3. ULTRAM [Concomitant]
  4. METFORMIN [Concomitant]
  5. GLIPIZIDE [Concomitant]

REACTIONS (4)
  - Hypersensitivity [None]
  - Cardio-respiratory arrest [None]
  - Convulsion [None]
  - Hypopnoea [None]
